FAERS Safety Report 6384429-0 (Version None)
Quarter: 2009Q4

REPORT INFORMATION
  Report Type: 
  Country: None (occurrence: None)
  Receive Date: 20091001
  Receipt Date: 20090923
  Transmission Date: 20100525
  Serious: Yes (Other)
  Sender: FDA-Public Use
  Company Number: BR-PFIZER INC-2009202201

PATIENT
  Age: 23 Year

DRUGS (1)
  1. SILDENAFIL CITRATE [Suspect]
     Dosage: UNK
     Dates: start: 20050101

REACTIONS (3)
  - CHORIORETINAL SCAR [None]
  - OCULAR VASCULAR DISORDER [None]
  - VITREOUS DISORDER [None]
